FAERS Safety Report 7271633-2 (Version None)
Quarter: 2011Q1

REPORT INFORMATION
  Report Type: 
  Country: None (occurrence: None)
  Receive Date: 20110203
  Receipt Date: 20110128
  Transmission Date: 20110831
  Serious: Yes (Other)
  Sender: FDA-Public Use
  Company Number: US-TEVA-265195USA

PATIENT
  Sex: Female

DRUGS (1)
  1. COPAXONE [Suspect]
     Indication: MULTIPLE SCLEROSIS
     Route: 058
     Dates: start: 20000101

REACTIONS (5)
  - DYSPHONIA [None]
  - THROAT TIGHTNESS [None]
  - HALLUCINATION, AUDITORY [None]
  - ERYTHEMA [None]
  - VOMITING [None]
